FAERS Safety Report 16609302 (Version 1)
Quarter: 2019Q3

REPORT INFORMATION
  Report Type: Spontaneous
  Country: US (occurrence: US)
  Receive Date: 20190720
  Receipt Date: 20190720
  Transmission Date: 20191004
  Serious: No
  Sender: FDA-Public Use
  Company Number: None

PATIENT
  Age: 62 Year
  Sex: Female
  Weight: 81 kg

DRUGS (2)
  1. MULTIPLE VITAMINS [Concomitant]
     Active Substance: VITAMINS
  2. EQUATE EYE ALLERGY RELIEF DROPS [Suspect]
     Active Substance: NAPHAZOLINE HYDROCHLORIDE\PHENIRAMINE MALEATE
     Indication: EYE ALLERGY
     Dosage: ?          QUANTITY:2 DROP(S);?
     Route: 047

REACTIONS (2)
  - Eye infection [None]
  - Hordeolum [None]

NARRATIVE: CASE EVENT DATE: 20190712
